FAERS Safety Report 20615928 (Version 1)
Quarter: 2022Q1

REPORT INFORMATION
  Report Type: Spontaneous
  Country: CN (occurrence: CN)
  Receive Date: 20220321
  Receipt Date: 20220321
  Transmission Date: 20220424
  Serious: Yes (Death, Other)
  Sender: FDA-Public Use
  Company Number: CN-SA-2022SA093851

PATIENT
  Age: 52 Year
  Sex: Male

DRUGS (12)
  1. METHOTREXATE [Suspect]
     Active Substance: METHOTREXATE
     Indication: Prophylaxis against graft versus host disease
     Dosage: 15 MG/M2, QD, DAY +1
  2. METHOTREXATE [Suspect]
     Active Substance: METHOTREXATE
     Dosage: 10 MG/M2, QD, ON DAYS +3, +6, AND +11
  3. ANTI-THYMOCYTE GLOBULIN (RABBIT) NOS [Suspect]
     Active Substance: LAPINE T-LYMPHOCYTE IMMUNE GLOBULIN
     Indication: Prophylaxis against graft versus host disease
     Dosage: DAYS ?5 TO ?2
  4. CYCLOSPORINE [Suspect]
     Active Substance: CYCLOSPORINE
     Indication: Prophylaxis against graft versus host disease
     Dosage: 200 NG/ML
  5. CYCLOSPORINE [Suspect]
     Active Substance: CYCLOSPORINE
     Dosage: 300 NG/ML
  6. MYCOPHENOLATE MOFETIL [Suspect]
     Active Substance: MYCOPHENOLATE MOFETIL
     Indication: Prophylaxis against graft versus host disease
     Dosage: 15 MG/KG, BID, DAYS -9 TO +30 AND THEN GRADUALLY DECREASED BY DAY +40
     Route: 048
  7. BUSULFAN [Concomitant]
     Active Substance: BUSULFAN
     Dosage: 9.6 MG/KG, 12 DOSES ON DAYS -7 TO -5
     Route: 042
  8. CYCLOPHOSPHAMIDE [Concomitant]
     Active Substance: CYCLOPHOSPHAMIDE
     Dosage: 3.6 G/M2, ON DAYS -4 TO -3
     Route: 042
  9. VALPROATE SODIUM [Concomitant]
     Active Substance: VALPROATE SODIUM
     Indication: Seizure prophylaxis
  10. MESNA [Concomitant]
     Active Substance: MESNA
     Indication: Cystitis haemorrhagic
  11. GRANULOCYTE COLONY-STIMULATING FACTOR NOS [Concomitant]
     Active Substance: GRANULOCYTE COLONY-STIMULATING FACTOR NOS
     Dosage: 5 UG/KG
     Route: 058
  12. GRANULOCYTE COLONY-STIMULATING FACTOR NOS [Concomitant]
     Active Substance: GRANULOCYTE COLONY-STIMULATING FACTOR NOS
     Dosage: 10 UNK
     Route: 058

REACTIONS (4)
  - Toxic epidermal necrolysis [Fatal]
  - Acute graft versus host disease [Fatal]
  - Chronic graft versus host disease [Fatal]
  - Post procedural pneumonia [Fatal]
